FAERS Safety Report 10187990 (Version 1)
Quarter: 2014Q2

REPORT INFORMATION
  Report Type: Spontaneous
  Country: US (occurrence: US)
  Receive Date: 20140522
  Receipt Date: 20140522
  Transmission Date: 20141212
  Serious: No
  Sender: FDA-Public Use
  Company Number: US-SA-2013SA096412

PATIENT
  Age: 56 Year
  Sex: Female

DRUGS (2)
  1. SOLOSTAR [Suspect]
     Indication: TYPE 2 DIABETES MELLITUS
     Dates: start: 2011
  2. LANTUS SOLOSTAR [Suspect]
     Indication: TYPE 2 DIABETES MELLITUS
     Dosage: DOSE:10 UNIT(S)
     Route: 051
     Dates: start: 2011

REACTIONS (7)
  - Hypertension [Unknown]
  - Angina pectoris [Unknown]
  - Neuropathy peripheral [Unknown]
  - Hyperhidrosis [Unknown]
  - Sleep apnoea syndrome [Unknown]
  - Blood glucose increased [Unknown]
  - Drug dose omission [Unknown]
